FAERS Safety Report 24928867 (Version 3)
Quarter: 2025Q1

REPORT INFORMATION
  Report Type: Report from Study
  Country: CA (occurrence: CA)
  Receive Date: 20250205
  Receipt Date: 20250212
  Transmission Date: 20250409
  Serious: No
  Sender: ROCHE
  Company Number: CA-ROCHE-10000198631

PATIENT
  Age: 50 Year
  Sex: Female

DRUGS (4)
  1. OCREVUS [Suspect]
     Active Substance: OCRELIZUMAB
     Indication: Relapsing-remitting multiple sclerosis
     Dosage: 300 MG AT DAY 0 AND 14, THEN 600 MG EVERY 6 MONTHS
     Route: 042
     Dates: start: 20250129
  2. VALACYCLOVIR [Concomitant]
     Active Substance: VALACYCLOVIR HYDROCHLORIDE
     Dates: start: 2015
  3. VITAMIN D [Concomitant]
     Active Substance: VITAMIN D NOS
     Dates: start: 2013
  4. DEXLANSOPRAZOLE [Concomitant]
     Active Substance: DEXLANSOPRAZOLE
     Indication: Gastric ulcer

REACTIONS (13)
  - Pruritus [Not Recovered/Not Resolved]
  - Arthropod sting [Not Recovered/Not Resolved]
  - Infusion related reaction [Recovered/Resolved]
  - Pain [Not Recovered/Not Resolved]
  - Dizziness [Recovered/Resolved]
  - Lip erythema [Recovered/Resolved]
  - Ulcer [Recovered/Resolved]
  - Frequent bowel movements [Unknown]
  - Dysuria [Not Recovered/Not Resolved]
  - Lip haemorrhage [Recovered/Resolved]
  - Genital herpes [Recovered/Resolved]
  - Nausea [Unknown]
  - Large intestine infection [Unknown]

NARRATIVE: CASE EVENT DATE: 20250129
